FAERS Safety Report 17605621 (Version 1)
Quarter: 2020Q1

REPORT INFORMATION
  Report Type: Spontaneous
  Country: CA (occurrence: CA)
  Receive Date: 20200331
  Receipt Date: 20200331
  Transmission Date: 20200409
  Serious: Yes (Hospitalization, Other)
  Sender: FDA-Public Use
  Company Number: CA-TEVA-2020-CA-1216371

PATIENT
  Age: 32 Year
  Sex: Female

DRUGS (3)
  1. ACETAZOLAMIDE. [Suspect]
     Active Substance: ACETAZOLAMIDE
     Indication: HEADACHE
     Dosage: 1500 MILLIGRAM DAILY;
     Route: 065
  2. ACETAZOLAMIDE. [Suspect]
     Active Substance: ACETAZOLAMIDE
     Route: 065
  3. TOPIRAMATE. [Suspect]
     Active Substance: TOPIRAMATE
     Indication: HEADACHE
     Dosage: 50 MILLIGRAM DAILY;
     Route: 048

REACTIONS (8)
  - Metabolic acidosis [Unknown]
  - Product use in unapproved indication [Recovered/Resolved]
  - Respiratory alkalosis [Unknown]
  - Dyspnoea [Unknown]
  - Tachypnoea [Unknown]
  - Hypophosphataemia [Unknown]
  - Off label use [Recovered/Resolved]
  - Hyperventilation [Recovered/Resolved]
